FAERS Safety Report 8315037-X (Version None)
Quarter: 2012Q2

REPORT INFORMATION
  Report Type: 
  Country: None (occurrence: None)
  Receive Date: 20120426
  Receipt Date: 20120418
  Transmission Date: 20120825
  Serious: Yes (Other)
  Sender: FDA-Public Use
  Company Number: US-ASTRAZENECA-2012SE25612

PATIENT
  Age: 74 Year
  Sex: Female

DRUGS (1)
  1. PULMICORT [Suspect]
     Route: 055

REACTIONS (1)
  - CEREBROVASCULAR ACCIDENT [None]
